FAERS Safety Report 10211122 (Version 1)
Quarter: 2014Q2

REPORT INFORMATION
  Report Type: Spontaneous
  Country: US (occurrence: None)
  Receive Date: 20140530
  Receipt Date: 20140530
  Transmission Date: 20141212
  Serious: Yes (Hospitalization, Other)
  Sender: FDA-Public Use
  Company Number: None

PATIENT
  Sex: Female
  Weight: 77.11 kg

DRUGS (20)
  1. SUBOXONE [Suspect]
     Dosage: 8MG/2MG?3 BOXES OF 30?1 THREE TIMES A DAY?UNDER TONGUE
     Dates: start: 201403
  2. CLONIDINE [Concomitant]
  3. MAXIDE [Concomitant]
  4. TRAZADONE [Concomitant]
  5. RESTORIL [Concomitant]
  6. PHENEGRAN [Concomitant]
  7. TOPOMAX [Concomitant]
  8. ABILIFY [Concomitant]
  9. ASPIRIN [Concomitant]
  10. SPIRONOLACTONE [Concomitant]
  11. BACKLOFEN [Concomitant]
  12. LIZESS [Concomitant]
  13. ZESTORETIC [Concomitant]
  14. ESTRADIOL [Concomitant]
  15. PROZAC [Concomitant]
  16. PERCOGESIC [Concomitant]
  17. B12 COMPLEX [Concomitant]
  18. VITAMIN D [Concomitant]
  19. IBPROFEN [Concomitant]
  20. TYLENOL ARTHRITIS [Concomitant]

REACTIONS (10)
  - Cardiac failure congestive [None]
  - Loss of consciousness [None]
  - Headache [None]
  - Back pain [None]
  - Drug dependence [None]
  - Oral pain [None]
  - Nausea [None]
  - Weight increased [None]
  - Hyperhidrosis [None]
  - Toxicity to various agents [None]
